FAERS Safety Report 7959562-X (Version None)
Quarter: 2011Q4

REPORT INFORMATION
  Report Type: 
  Country: None (occurrence: None)
  Receive Date: 20111206
  Receipt Date: 20111202
  Transmission Date: 20120403
  Serious: Yes (Death)
  Sender: FDA-Public Use
  Company Number: CZ-ROCHE-1018761

PATIENT
  Sex: Female

DRUGS (5)
  1. MEDROL [Concomitant]
     Indication: JUVENILE ARTHRITIS
  2. ALENDRONATE SODIUM [Concomitant]
     Indication: JUVENILE ARTHRITIS
  3. CALCIUM CARBONATE [Concomitant]
     Indication: JUVENILE ARTHRITIS
  4. METHOTREXATE [Concomitant]
     Indication: JUVENILE ARTHRITIS
  5. ACTEMRA [Suspect]
     Indication: JUVENILE ARTHRITIS
     Route: 041
     Dates: start: 20110824, end: 20111121

REACTIONS (1)
  - MYOCARDIAL INFARCTION [None]
